FAERS Safety Report 7747622-8 (Version None)
Quarter: 2011Q3

REPORT INFORMATION
  Report Type: 
  Country: None (occurrence: None)
  Receive Date: 20110913
  Receipt Date: 20110908
  Transmission Date: 20111222
  Serious: Yes (Hospitalization)
  Sender: FDA-Public Use
  Company Number: NL-AMGEN-NLDSP2011046214

PATIENT
  Sex: Female

DRUGS (12)
  1. ONDANSETRON [Concomitant]
     Indication: PROPHYLAXIS
  2. DOXORUBICIN HCL [Suspect]
     Indication: BREAST CANCER
     Dosage: 95 MG, QD
     Route: 042
     Dates: start: 20110617, end: 20110818
  3. METFORMIN HCL [Concomitant]
     Dosage: 500 MG, UNK
  4. CYCLOPHOSPHAMIDE [Suspect]
     Indication: BREAST CANCER
     Dosage: 945 MG, QD
     Route: 042
     Dates: start: 20110617, end: 20110818
  5. BYSTOLIC [Concomitant]
     Dosage: 5 MG, UNK
  6. NEULASTA [Suspect]
     Indication: PROPHYLAXIS
  7. DOCETAXEL [Suspect]
     Indication: BREAST CANCER
     Dosage: 142 MG, QD
     Route: 042
     Dates: start: 20110617, end: 20110818
  8. LIPITOR [Concomitant]
     Dosage: 200 MG, UNK
  9. GRANISETRON [Concomitant]
     Indication: PROPHYLAXIS
  10. DEXAMETHASONE [Concomitant]
  11. VENTOLIN [Concomitant]
  12. SYMBICORT [Concomitant]

REACTIONS (2)
  - COUGH [None]
  - PYREXIA [None]
